FAERS Safety Report 10222105 (Version 1)
Quarter: 2014Q2

REPORT INFORMATION
  Report Type: Spontaneous
  Country: US (occurrence: None)
  Receive Date: 20140606
  Receipt Date: 20140606
  Transmission Date: 20141212
  Serious: Yes (Disabling)
  Sender: FDA-Public Use
  Company Number: None

PATIENT
  Age: 41 Year
  Sex: Female

DRUGS (1)
  1. LEVOFLOXACIN 500 MG [Suspect]
     Indication: MASTITIS
     Dosage: 1 PILL, ONCE DAILY, TAKEN BY MOUTH
     Route: 048
     Dates: start: 20140530, end: 20140604

REACTIONS (10)
  - Arthralgia [None]
  - Rash [None]
  - Joint swelling [None]
  - Activities of daily living impaired [None]
  - Rash [None]
  - Peripheral swelling [None]
  - Joint swelling [None]
  - Peripheral swelling [None]
  - Joint swelling [None]
  - Drug dose omission [None]
